FAERS Safety Report 8787788 (Version 2)
Quarter: 2015Q1

REPORT INFORMATION
  Report Type: Report from Study
  Country: US (occurrence: US)
  Receive Date: 20120914
  Receipt Date: 20150331
  Transmission Date: 20150721
  Serious: Yes (Death)
  Sender: FDA-Public Use
  Company Number: US-ROCHE-1126530

PATIENT
  Sex: Male

DRUGS (19)
  1. PLATINOL [Concomitant]
     Active Substance: CISPLATIN
     Dosage: DOSE RECEIVED ON  02/OCT/2008, 20/OCT/2008, 03/NOV/2008, 01/DEC/2008, 12/JAN/2009
     Route: 042
  2. ALOXI [Concomitant]
     Active Substance: PALONOSETRON HYDROCHLORIDE
     Dosage: DOSE RECEIVED ON 17/SEP/2008,  02/OCT/2008, 20/OCT/2008, 03/NOV/2008, 01/DEC/2008, 12/JAN/2009, 26/J
     Route: 042
  3. CPT-11 [Concomitant]
     Active Substance: IRINOTECAN
     Dosage: DOSE RECEIVED ON 20/OCT/2008
     Route: 042
  4. DECADRON [Concomitant]
     Active Substance: DEXAMETHASONE
     Dosage: DOSE RECEIEVD ON 02/OCT/2008, 20/OCT/2008, 03/NOV/2008, 01/DEC/2008, 12/JAN/2009
     Route: 042
  5. CPT-11 [Concomitant]
     Active Substance: IRINOTECAN
     Dosage: DOSE RECEIEVD ON 02/OCT/2008 AND 17/SEP/2008
     Route: 065
  6. AVASTIN [Suspect]
     Active Substance: BEVACIZUMAB
     Dosage: DOSE RECEIVED ON 03/NOV/2008,12/JAN/2009, 26/JAN/2009 AND 09/FEB/2009
     Route: 042
  7. CPT-11 [Concomitant]
     Active Substance: IRINOTECAN
     Dosage: DOSE RECEIEVD ON 03/NOV/2008
     Route: 042
  8. APREPITANT. [Concomitant]
     Active Substance: APREPITANT
     Dosage: DOSE RECEIVED ON 09/FEB/2009
     Route: 048
  9. MAGNESIUM SULPHATE [Concomitant]
     Active Substance: MAGNESIUM SULFATE
     Dosage: DOSE RECEIVED ON 09/FEB/2009
     Route: 042
  10. VITAMIN B12 [Concomitant]
     Active Substance: CYANOCOBALAMIN
  11. CPT-11 [Concomitant]
     Active Substance: IRINOTECAN
     Dosage: DOSE RECEIVED ON  09/FEB/2009
     Route: 065
  12. CPT-11 [Concomitant]
     Active Substance: IRINOTECAN
     Dosage: DOSE RECEIVED ON 12/JAN/2009, 26/JAN/2009
     Route: 065
  13. AVASTIN [Suspect]
     Active Substance: BEVACIZUMAB
     Dosage: DOSE RECEIVED ON 02/OCT/2008 AND 20/OCT/2008
     Route: 042
  14. PLATINOL [Concomitant]
     Active Substance: CISPLATIN
     Dosage: DOSE RECEIVED ON 26/JAN/2009 AND 09/FEB/2009
     Route: 042
  15. MAGNESIUM SULPHATE [Concomitant]
     Active Substance: MAGNESIUM SULFATE
     Dosage: DOSE RECEIVED ON 26/JAN/2009
     Route: 065
  16. CPT-11 [Concomitant]
     Active Substance: IRINOTECAN
     Dosage: DOSE RECEIVED ON 01/DEC/2008
     Route: 042
  17. AVASTIN [Suspect]
     Active Substance: BEVACIZUMAB
     Indication: GASTRIC CANCER
     Route: 042
     Dates: start: 20080917
  18. ATROPINE [Concomitant]
     Active Substance: ATROPINE
     Dosage: DOSE RECEIVED ON 17/SEP/2008
     Route: 042
  19. NEULASTA [Concomitant]
     Active Substance: PEGFILGRASTIM
     Dosage: DOSE RECEIVED ON 12/JAN/2009
     Route: 058

REACTIONS (3)
  - Oedema [Unknown]
  - Death [Fatal]
  - Discomfort [Unknown]
